FAERS Safety Report 12147560 (Version 8)
Quarter: 2017Q2

REPORT INFORMATION
  Report Type: Spontaneous
  Country: JP (occurrence: JP)
  Receive Date: 20160304
  Receipt Date: 20170608
  Transmission Date: 20170829
  Serious: Yes (Death, Hospitalization, Other)
  Sender: FDA-Public Use
  Company Number: JP-JNJFOC-20160303377

PATIENT
  Age: 47 Year
  Sex: Male
  Weight: 64 kg

DRUGS (8)
  1. XEPLION [Suspect]
     Active Substance: PALIPERIDONE PALMITATE
     Indication: SCHIZOPHRENIA
     Route: 030
     Dates: start: 20160125, end: 20160125
  2. HIRNAMIN [Concomitant]
     Active Substance: PHENOTHIAZINE
     Indication: SCHIZOPHRENIA
     Route: 048
     Dates: end: 20160125
  3. CONTOMIN [Concomitant]
     Active Substance: CHLORPROMAZINE
     Indication: SCHIZOPHRENIA
     Route: 048
     Dates: end: 20160125
  4. LULLAN [Concomitant]
     Active Substance: PEROSPIRONE HYDROCHLORIDE
     Indication: SCHIZOPHRENIA
     Route: 048
     Dates: end: 20160125
  5. XEPLION [Suspect]
     Active Substance: PALIPERIDONE PALMITATE
     Indication: SCHIZOPHRENIA
     Dosage: DELTOID MUSCLE
     Route: 030
     Dates: start: 20160222, end: 20160222
  6. XEPLION [Suspect]
     Active Substance: PALIPERIDONE PALMITATE
     Indication: SCHIZOPHRENIA
     Route: 030
     Dates: start: 20160304
  7. RISPERDAL [Concomitant]
     Active Substance: RISPERIDONE
     Indication: SCHIZOPHRENIA
     Route: 048
     Dates: end: 20160125
  8. LONASEN [Concomitant]
     Active Substance: BLONANSERIN
     Indication: SCHIZOPHRENIA
     Route: 048
     Dates: end: 20160125

REACTIONS (12)
  - Pneumonia aspiration [Fatal]
  - Respiratory depression [Fatal]
  - Hypoglycaemia [Unknown]
  - Arrhythmia [Unknown]
  - Salivary hypersecretion [Recovered/Resolved]
  - Parkinsonism [Unknown]
  - Electrocardiogram QT prolonged [Recovered/Resolved]
  - Muscle rigidity [Recovered/Resolved]
  - Nutritional condition abnormal [Unknown]
  - Circulatory collapse [Fatal]
  - Shock [Unknown]
  - Depressed level of consciousness [Unknown]

NARRATIVE: CASE EVENT DATE: 20160222
